FAERS Safety Report 7006908-5 (Version None)
Quarter: 2010Q3

REPORT INFORMATION
  Report Type: 
  Country: None (occurrence: None)
  Receive Date: 20100922
  Receipt Date: 20100913
  Transmission Date: 20110219
  Serious: No
  Sender: FDA-Public Use
  Company Number: KR-JNJFOC-20100904678

PATIENT
  Age: 68 Year
  Sex: Female

DRUGS (2)
  1. DURAGESIC-100 [Suspect]
     Indication: PAIN MANAGEMENT
     Route: 062
  2. MOTILIUM-M [Concomitant]
     Indication: ANTIEMETIC SUPPORTIVE CARE
     Route: 048

REACTIONS (4)
  - ASTHENIA [None]
  - DEPRESSED MOOD [None]
  - DRUG ADMINISTRATION ERROR [None]
  - PRURITUS [None]
